FAERS Safety Report 16081924 (Version 3)
Quarter: 2019Q1

REPORT INFORMATION
  Report Type: Spontaneous
  Country: JP (occurrence: JP)
  Receive Date: 20190317
  Receipt Date: 20190328
  Transmission Date: 20190418
  Serious: Yes (Hospitalization)
  Sender: FDA-Public Use
  Company Number: JP-ROCHE-2274972

PATIENT
  Age: 18 Year
  Sex: Female
  Weight: 48 kg

DRUGS (5)
  1. RINDERON V [Concomitant]
     Active Substance: BETAMETHASONE VALERATE
     Dosage: DOSAGE IS UNCERTAIN.
     Route: 065
     Dates: start: 20180612
  2. SAMTIREL [Concomitant]
     Active Substance: ATOVAQUONE
     Dosage: DOSAGE IS UNCERTAIN.
     Route: 065
     Dates: start: 20181106
  3. KEVZARA [Concomitant]
     Active Substance: SARILUMAB
  4. CALFINA [Concomitant]
     Active Substance: ALFACALCIDOL
     Dosage: DOSAGE IS UNCERTAIN.
     Route: 065
     Dates: start: 20180511, end: 20181119
  5. ACTEMRA [Suspect]
     Active Substance: TOCILIZUMAB
     Indication: STILL^S DISEASE
     Route: 058
     Dates: start: 20180625, end: 20181110

REACTIONS (5)
  - Still^s disease [Unknown]
  - Product use in unapproved indication [Unknown]
  - Drug eruption [Recovered/Resolved]
  - Off label use [Unknown]
  - Injection site reaction [Unknown]

NARRATIVE: CASE EVENT DATE: 20181027
